FAERS Safety Report 23633483 (Version 2)
Quarter: 2025Q2

REPORT INFORMATION
  Report Type: Spontaneous
  Country: US (occurrence: US)
  Receive Date: 20240314
  Receipt Date: 20250416
  Transmission Date: 20250717
  Serious: No
  Sender: AMGEN
  Company Number: US-AMGEN-USASP2024050683

PATIENT
  Age: 61 Year
  Sex: Female

DRUGS (4)
  1. OTEZLA [Suspect]
     Active Substance: APREMILAST
     Indication: Psoriasis
     Dosage: 30 MILLIGRAM, BID
     Route: 048
     Dates: start: 20191015
  2. B12 [Concomitant]
     Route: 065
  3. MAGNESIUM [Concomitant]
     Active Substance: MAGNESIUM
     Route: 065
  4. VITAMIN C [Concomitant]
     Active Substance: ASCORBIC ACID
     Route: 065

REACTIONS (7)
  - Infection [Unknown]
  - Alopecia [Unknown]
  - Arthralgia [Unknown]
  - Rash [Unknown]
  - Upper respiratory tract infection [Unknown]
  - Nasal congestion [Unknown]
  - Fatigue [Unknown]
